FAERS Safety Report 4468123-9 (Version None)
Quarter: 2004Q4

REPORT INFORMATION
  Report Type: 
  Country: None (occurrence: None)
  Receive Date: 20041004
  Receipt Date: 20040924
  Transmission Date: 20050328
  Serious: Yes (Other)
  Sender: FDA-Public Use
  Company Number: SUS1-2004-00608

PATIENT
  Age: 7 Year
  Sex: Male
  Weight: 27.2 kg

DRUGS (4)
  1. ADDERALL XR(AMPHETAMINE ASPARTATE, AMPHETAMINE SULFATE, DEXTROAMPHETAM [Suspect]
     Indication: ATTENTION DEFICIT/HYPERACTIVITY DISORDER
     Dosage: SEE IMAGE
     Dates: start: 20040901, end: 20040901
  2. ADDERALL XR(AMPHETAMINE ASPARTATE, AMPHETAMINE SULFATE, DEXTROAMPHETAM [Suspect]
     Indication: ATTENTION DEFICIT/HYPERACTIVITY DISORDER
     Dosage: SEE IMAGE
     Dates: start: 20040901
  3. CONCERTA [Concomitant]
  4. STRATTERA [Concomitant]

REACTIONS (5)
  - AFFECTIVE DISORDER [None]
  - CRYING [None]
  - DEPRESSION [None]
  - IRRITABILITY [None]
  - SUICIDAL IDEATION [None]
